FAERS Safety Report 7304963-6 (Version None)
Quarter: 2011Q1

REPORT INFORMATION
  Report Type: 
  Country: None (occurrence: None)
  Receive Date: 20110222
  Receipt Date: 20110215
  Transmission Date: 20110831
  Serious: Yes (Death, Life-Threatening, Hospitalization)
  Sender: FDA-Public Use
  Company Number: BR-BRISTOL-MYERS SQUIBB COMPANY-15470255

PATIENT
  Age: 71 Year
  Sex: Male

DRUGS (12)
  1. CEPHALEXIN [Concomitant]
     Indication: PHLEBITIS
     Dates: start: 20101007, end: 20101207
  2. CEPHALEXIN [Concomitant]
     Indication: CELLULITIS
     Dates: start: 20101007, end: 20101207
  3. TIOTROPIUM BROMIDE [Concomitant]
     Indication: CHRONIC OBSTRUCTIVE PULMONARY DISEASE
     Dosage: MAY08-10NOV10:2 YRS 25NOV10-06DEC10:11 DYS
     Dates: start: 20080501, end: 20101206
  4. PACLITAXEL [Suspect]
     Indication: NON-SMALL CELL LUNG CANCER
     Dosage: ON DAY 1 OF EACH 21 DAY CYCLE  1 IN 21 DAY
     Route: 042
     Dates: start: 20100930, end: 20101125
  5. NYSTATIN [Concomitant]
     Indication: MUCOSAL INFLAMMATION
     Dosage: 100 UL/ML
     Dates: start: 20101007, end: 20101011
  6. ONDANSETRON [Concomitant]
     Indication: PROPHYLAXIS OF NAUSEA AND VOMITING
     Dates: start: 20100930, end: 20100930
  7. KETOCONAZOLE [Concomitant]
     Dates: start: 20101007, end: 20101207
  8. SERETIDE [Concomitant]
     Indication: CHRONIC OBSTRUCTIVE PULMONARY DISEASE
     Dosage: 1 DF = 50/250MCG MAR07-10NOV10:3 YRS 25NOV10-06DEC10:11 DYS
     Dates: start: 20070301, end: 20101206
  9. CARBOPLATIN [Suspect]
     Indication: NON-SMALL CELL LUNG CANCER
     Dosage: 1 DF = AUC 6 MG/ML/MINT ON DAY 1 OF EACH 21 DAY CYCLE  1 IN 21 DAY
     Route: 042
     Dates: start: 20100930, end: 20101125
  10. GLUCOSE [Concomitant]
     Indication: DEHYDRATION
     Dosage: 50%
     Dates: start: 20101007, end: 20101007
  11. BICARBONATE [Concomitant]
     Indication: MUCOSAL INFLAMMATION
     Dates: start: 20101007, end: 20101011
  12. CAPTOPRIL [Concomitant]
     Indication: HYPERTENSION
     Dates: start: 20090301, end: 20101207

REACTIONS (7)
  - SEPTIC SHOCK [None]
  - URINARY TRACT INFECTION [None]
  - NEUTROPENIA [None]
  - DEHYDRATION [None]
  - MUCOSAL INFLAMMATION [None]
  - RESPIRATORY FAILURE [None]
  - PNEUMONIA [None]
